FAERS Safety Report 7518777-5 (Version None)
Quarter: 2011Q2

REPORT INFORMATION
  Report Type: 
  Country: None (occurrence: None)
  Receive Date: 20110602
  Receipt Date: 20110526
  Transmission Date: 20111010
  Serious: No
  Sender: FDA-Public Use
  Company Number: US-PFIZER INC-2011110776

PATIENT
  Sex: Female
  Weight: 99.773 kg

DRUGS (7)
  1. PROVENTIL [Concomitant]
     Dosage: UNK
  2. EFFEXOR [Concomitant]
     Indication: DEPRESSION
     Dosage: UNK
  3. CELEXA [Concomitant]
     Dosage: UNK
  4. EFFEXOR [Concomitant]
     Indication: ANXIETY
  5. FLONASE [Concomitant]
     Indication: HYPERSENSITIVITY
     Dosage: UNK
  6. CHANTIX [Suspect]
     Indication: SMOKING CESSATION THERAPY
     Dosage: 0.5 MG, 1X/DAY
     Route: 048
     Dates: start: 20110513, end: 20110523
  7. ALBUTEROL SULFATE AUTOHALER [Concomitant]
     Indication: ASTHMA
     Dosage: UNK

REACTIONS (6)
  - NAUSEA [None]
  - PAIN [None]
  - MALAISE [None]
  - HYPERSOMNIA [None]
  - CONFUSIONAL STATE [None]
  - MEMORY IMPAIRMENT [None]
